FAERS Safety Report 4747423-9 (Version None)
Quarter: 2005Q3

REPORT INFORMATION
  Report Type: 
  Country: None (occurrence: None)
  Receive Date: 20050815
  Receipt Date: 20050711
  Transmission Date: 20060218
  Serious: No
  Sender: FDA-Public Use
  Company Number: USA0507102499

PATIENT
  Age: 72 Year
  Sex: Male

DRUGS (4)
  1. CIALIS [Suspect]
     Dosage: 20 MG
     Dates: start: 20050101
  2. COZAAR [Concomitant]
  3. ATENOLOL [Concomitant]
  4. VIAGRA [Concomitant]

REACTIONS (1)
  - DRUG INEFFECTIVE [None]
